FAERS Safety Report 8268212-7 (Version None)
Quarter: 2012Q2

REPORT INFORMATION
  Report Type: 
  Country: None (occurrence: None)
  Receive Date: 20120409
  Receipt Date: 20120328
  Transmission Date: 20120825
  Serious: Yes (Hospitalization)
  Sender: FDA-Public Use
  Company Number: FR-ROCHE-1054243

PATIENT
  Sex: Male
  Weight: 62 kg

DRUGS (10)
  1. ACETAMINOPHEN [Concomitant]
  2. BACTRIM [Concomitant]
  3. MABTHERA [Suspect]
     Indication: VASCULITIS
     Route: 042
     Dates: start: 20111214, end: 20120105
  4. ABACAVIR SULFATE/LAMIVUDINE [Concomitant]
     Route: 048
  5. PREZISTA [Concomitant]
     Route: 048
  6. FOLIC ACID [Concomitant]
  7. METHYLPREDNISOLONE [Concomitant]
     Route: 042
     Dates: start: 20111214, end: 20120105
  8. NORVIR [Concomitant]
     Route: 048
  9. FUZEON [Concomitant]
     Route: 058
  10. POLARAMINE [Concomitant]

REACTIONS (1)
  - AGRANULOCYTOSIS [None]
